FAERS Safety Report 6276012-2 (Version None)
Quarter: 2009Q3

REPORT INFORMATION
  Report Type: 
  Country: None (occurrence: None)
  Receive Date: 20090720
  Receipt Date: 20090708
  Transmission Date: 20100115
  Serious: Yes (Hospitalization)
  Sender: FDA-Public Use
  Company Number: 8048737

PATIENT
  Age: 45 Year
  Sex: Male
  Weight: 79 kg

DRUGS (9)
  1. XYZAL [Suspect]
     Dosage: 5 MG ONCE PO
     Route: 048
     Dates: start: 20090610, end: 20090610
  2. DEXAMETHASONE [Suspect]
     Indication: MULTIPLE MYELOMA
     Dosage: 40 MG PO
     Route: 048
     Dates: start: 20090527, end: 20090530
  3. THALIDOMIDE [Suspect]
     Indication: MULTIPLE MYELOMA
     Dosage: 100 MG 1/D PO
     Route: 048
     Dates: start: 20090518, end: 20090615
  4. MARCOURMAR [Suspect]
     Indication: PROPHYLAXIS
     Dosage: 3 MG PRN PO
     Route: 048
     Dates: start: 20090518, end: 20090615
  5. DIFLUCAN [Suspect]
     Indication: PROPHYLAXIS
     Dosage: 400 MG 1/W PO
     Route: 048
     Dates: start: 20080101, end: 20090615
  6. PANTOZOL /01263202/ [Suspect]
     Indication: PROPHYLAXIS
     Dosage: 40 MG 1/D PO
     Route: 048
     Dates: start: 20080101, end: 20090615
  7. BACTRIM [Suspect]
     Indication: PROPHYLAXIS
     Dosage: 3/W PO
     Route: 048
     Dates: start: 20080101, end: 20090615
  8. VALTREX [Suspect]
     Indication: PROPHYLAXIS
     Dosage: 500 MG 2/D PO
     Route: 048
     Dates: start: 20080101, end: 20090615
  9. CALCIMAGON-D3 [Concomitant]

REACTIONS (1)
  - LIVER INJURY [None]
